FAERS Safety Report 7134659-5 (Version None)
Quarter: 2010Q4

REPORT INFORMATION
  Report Type: 
  Country: None (occurrence: None)
  Receive Date: 20101203
  Receipt Date: 20101119
  Transmission Date: 20110411
  Serious: Yes (Other)
  Sender: FDA-Public Use
  Company Number: US-ELI_LILLY_AND_COMPANY-US201011007352

PATIENT
  Age: 51 Year
  Sex: Male

DRUGS (2)
  1. OLANZAPINE [Suspect]
     Indication: DELIRIUM
     Route: 058
  2. HALOPERIDOL [Concomitant]

REACTIONS (1)
  - DIABETES INSIPIDUS [None]
